FAERS Safety Report 19425703 (Version 1)
Quarter: 2021Q2

REPORT INFORMATION
  Report Type: Spontaneous
  Country: US (occurrence: US)
  Receive Date: 20210617
  Receipt Date: 20210617
  Transmission Date: 20210717
  Serious: No
  Sender: FDA-Public Use
  Company Number: US-SA-2021SA196027

PATIENT
  Sex: Female

DRUGS (1)
  1. AUBAGIO [Suspect]
     Active Substance: TERIFLUNOMIDE
     Indication: MULTIPLE SCLEROSIS
     Dosage: 14 MG, QD
     Route: 048
     Dates: start: 20191220

REACTIONS (6)
  - Product dose omission issue [Unknown]
  - Nervousness [Unknown]
  - Memory impairment [Unknown]
  - Condition aggravated [Unknown]
  - Mobility decreased [Unknown]
  - Anxiety [Unknown]
